FAERS Safety Report 7214211-3 (Version None)
Quarter: 2011Q1

REPORT INFORMATION
  Report Type: 
  Country: None (occurrence: None)
  Receive Date: 20110107
  Receipt Date: 20101228
  Transmission Date: 20110831
  Serious: Yes (Other)
  Sender: FDA-Public Use
  Company Number: US-SANOFI-AVENTIS-2011SA000946

PATIENT
  Age: 69 Year
  Sex: Male

DRUGS (6)
  1. FLUDARABINE PHOSPHATE [Suspect]
     Route: 065
  2. FLUDARABINE PHOSPHATE [Suspect]
     Route: 065
  3. FLUDARABINE PHOSPHATE [Suspect]
     Route: 065
  4. FLUDARABINE PHOSPHATE [Suspect]
     Route: 065
  5. FLUDARABINE PHOSPHATE [Suspect]
     Route: 065
  6. FLUDARABINE PHOSPHATE [Suspect]
     Route: 065

REACTIONS (15)
  - EPSTEIN-BARR VIRUS INFECTION [None]
  - PHARYNGEAL MASS [None]
  - SPLENOMEGALY [None]
  - MALNUTRITION [None]
  - PANCYTOPENIA [None]
  - HODGKIN'S DISEASE [None]
  - METABOLIC ACIDOSIS [None]
  - LYMPHOPROLIFERATIVE DISORDER [None]
  - MULTI-ORGAN FAILURE [None]
  - PNEUMONIA [None]
  - RENAL FAILURE [None]
  - MENTAL STATUS CHANGES [None]
  - PLASMABLASTIC LYMPHOMA [None]
  - LYMPHADENOPATHY [None]
  - MUCOSAL INFLAMMATION [None]
